FAERS Safety Report 13232105 (Version 2)
Quarter: 2017Q2

REPORT INFORMATION
  Report Type: Spontaneous
  Country: JP (occurrence: JP)
  Receive Date: 20170214
  Receipt Date: 20170406
  Transmission Date: 20170830
  Serious: Yes (Other)
  Sender: FDA-Public Use
  Company Number: JP-MYLANLABS-2017M1008277

PATIENT

DRUGS (8)
  1. HERCEPTIN [Suspect]
     Active Substance: TRASTUZUMAB
     Dosage: ??
     Dates: start: 20170217
  2. TAPCOM [Concomitant]
     Active Substance: TAFLUPROST\TIMOLOL
     Indication: PRODUCT USED FOR UNKNOWN INDICATION
  3. EPIRUBICIN MYLAN [Suspect]
     Active Substance: EPIRUBICIN
     Indication: BREAST CANCER
     Dosage: 175 MG, CYCLE
     Route: 041
     Dates: start: 20160304, end: 20160506
  4. HERCEPTIN [Suspect]
     Active Substance: TRASTUZUMAB
     Indication: BREAST CANCER
     Dosage: UNK UNK, CYCLE
     Route: 065
     Dates: start: 20160527
  5. 5-FU                               /00098801/ [Concomitant]
     Active Substance: FLUOROURACIL
     Indication: BREAST CANCER
     Dosage: 890 MG, CYCLE
     Route: 065
     Dates: start: 20160304, end: 20160506
  6. CYCLOPHOSPHAMIDE. [Concomitant]
     Active Substance: CYCLOPHOSPHAMIDE
     Indication: BREAST CANCER
     Dosage: 890 MG, CYCLE
     Route: 065
     Dates: start: 20160304, end: 20160506
  7. ALPHAGAN P [Concomitant]
     Active Substance: BRIMONIDINE TARTRATE
     Indication: PRODUCT USED FOR UNKNOWN INDICATION
     Route: 065
  8. DOCETAXEL. [Concomitant]
     Active Substance: DOCETAXEL
     Indication: BREAST CANCER
     Dosage: UNK UNK, CYCLE
     Route: 065
     Dates: start: 20160527

REACTIONS (2)
  - Atrial fibrillation [Recovering/Resolving]
  - Extrasystoles [Recovering/Resolving]

NARRATIVE: CASE EVENT DATE: 20170116
